FAERS Safety Report 9641576 (Version 1)
Quarter: 2013Q4

REPORT INFORMATION
  Report Type: Spontaneous
  Country: US (occurrence: None)
  Receive Date: 20131021
  Receipt Date: 20131021
  Transmission Date: 20140711
  Serious: Yes (Life-Threatening)
  Sender: FDA-Public Use
  Company Number: FK201304638

PATIENT
  Age: 61 Year
  Sex: Male

DRUGS (1)
  1. OXALIPLATIN (OXALIPLATIN) [Suspect]
     Indication: COLON CANCER RECURRENT
     Dates: start: 20131007, end: 20131007

REACTIONS (2)
  - Respiratory failure [None]
  - Hypotension [None]
